FAERS Safety Report 25252401 (Version 1)
Quarter: 2025Q2

REPORT INFORMATION
  Report Type: Report from Study
  Country: US (occurrence: US)
  Receive Date: 20250429
  Receipt Date: 20250429
  Transmission Date: 20250716
  Serious: Yes (Other)
  Sender: ABBVIE
  Company Number: US-ABBVIE-6249904

PATIENT
  Sex: Female

DRUGS (1)
  1. HUMIRA [Suspect]
     Active Substance: ADALIMUMAB
     Indication: Ankylosing spondylitis
     Route: 058
     Dates: start: 20241231

REACTIONS (3)
  - Ovarian mass [Recovered/Resolved with Sequelae]
  - Impaired healing [Recovered/Resolved with Sequelae]
  - Wound dehiscence [Recovered/Resolved with Sequelae]
